FAERS Safety Report 24336404 (Version 2)
Quarter: 2024Q3

REPORT INFORMATION
  Report Type: Spontaneous
  Country: SA (occurrence: SA)
  Receive Date: 20240919
  Receipt Date: 20240926
  Transmission Date: 20241017
  Serious: Yes (Hospitalization)
  Sender: ROCHE
  Company Number: SA-ROCHE-10000084578

PATIENT
  Age: 79 Year
  Sex: Male

DRUGS (4)
  1. ATEZOLIZUMAB [Suspect]
     Active Substance: ATEZOLIZUMAB
     Indication: Neoplasm malignant
     Route: 065
  2. BEVACIZUMAB [Concomitant]
     Active Substance: BEVACIZUMAB
     Indication: Hepatocellular carcinoma
     Route: 065
  3. DEXAMETHASONE [Concomitant]
     Active Substance: DEXAMETHASONE
     Route: 042
  4. PREDNISONE [Concomitant]
     Active Substance: PREDNISONE
     Dosage: ON DAY 4

REACTIONS (1)
  - Linear IgA disease [Recovering/Resolving]
